FAERS Safety Report 10231365 (Version 1)
Quarter: 2014Q2

REPORT INFORMATION
  Report Type: Spontaneous
  Country: US (occurrence: None)
  Receive Date: 20140506
  Receipt Date: 20140506
  Transmission Date: 20141212
  Serious: Yes (Other)
  Sender: FDA-Public Use
  Company Number: 1303963

PATIENT
  Sex: Male

DRUGS (3)
  1. AVASTATIN (BEVACIZUMAB) (INFUSION , SOLUTION) [Suspect]
     Indication: LUNG NEOPLASM MALIGNANT
     Dosage: RECEIVED 6 CYCLES
  2. ALIMATA (PEMTREXED DISODIUM) [Concomitant]
  3. CARBOPLATIN (CARBOPLATIN) [Concomitant]

REACTIONS (1)
  - Duodenal perforation [None]
